FAERS Safety Report 14763877 (Version 1)
Quarter: 2018Q2

REPORT INFORMATION
  Report Type: Spontaneous
  Country: US (occurrence: US)
  Receive Date: 20180416
  Receipt Date: 20180416
  Transmission Date: 20180711
  Serious: Yes (Hospitalization, Other)
  Sender: FDA-Public Use
  Company Number: US-B.I. PHARMACEUTICALS,INC./RIDGEFIELD-2018-BI-019641

PATIENT
  Age: 69 Year
  Sex: Female

DRUGS (4)
  1. METFORMIN [Concomitant]
     Active Substance: METFORMIN HYDROCHLORIDE
     Indication: TYPE 2 DIABETES MELLITUS
     Route: 065
  2. SIMVASTATIN. [Concomitant]
     Active Substance: SIMVASTATIN
     Indication: BLOOD CHOLESTEROL INCREASED
     Route: 065
  3. GLIPIZIDE. [Concomitant]
     Active Substance: GLIPIZIDE
     Indication: PRODUCT USED FOR UNKNOWN INDICATION
     Route: 065
  4. GLYXAMBI [Suspect]
     Active Substance: EMPAGLIFLOZIN\LINAGLIPTIN
     Indication: TYPE 2 DIABETES MELLITUS
     Dosage: FORM STRENGTH: 10 MG/ 5 MG. ADMINISTRATION CORRECT? YES
     Route: 048
     Dates: start: 2016

REACTIONS (6)
  - Pyrexia [Recovered/Resolved]
  - Intraductal proliferative breast lesion [Not Recovered/Not Resolved]
  - Breast cancer [Not Recovered/Not Resolved]
  - Adverse reaction [Recovered/Resolved]
  - Radiation injury [Recovered/Resolved]
  - Triple negative breast cancer [Not Recovered/Not Resolved]

NARRATIVE: CASE EVENT DATE: 2018
